FAERS Safety Report 12967318 (Version 2)
Quarter: 2017Q1

REPORT INFORMATION
  Report Type: Spontaneous
  Country: ES (occurrence: ES)
  Receive Date: 20161123
  Receipt Date: 20170131
  Transmission Date: 20170428
  Serious: Yes (Death, Hospitalization, Other)
  Sender: FDA-Public Use
  Company Number: ES-ROCHE-1856608

PATIENT
  Age: 59 Year
  Sex: Male

DRUGS (2)
  1. ERIVEDGE [Suspect]
     Active Substance: VISMODEGIB
     Indication: BASAL CELL CARCINOMA
     Route: 065
     Dates: start: 20160706
  2. INSULINE [Concomitant]
     Active Substance: INSULIN NOS

REACTIONS (5)
  - Death [Fatal]
  - Cachexia [Not Recovered/Not Resolved]
  - Lung neoplasm malignant [Unknown]
  - Fall [Unknown]
  - Hypoventilation [Not Recovered/Not Resolved]

NARRATIVE: CASE EVENT DATE: 20160922
